FAERS Safety Report 13317731 (Version 1)
Quarter: 2017Q1

REPORT INFORMATION
  Report Type: Spontaneous
  Country: US (occurrence: US)
  Receive Date: 20170310
  Receipt Date: 20170310
  Transmission Date: 20170428
  Serious: No
  Sender: FDA-Public Use
  Company Number: US-PFIZER INC-2017099298

PATIENT
  Age: 66 Year
  Sex: Female
  Weight: 56.8 kg

DRUGS (18)
  1. TOPIRAMATE. [Concomitant]
     Active Substance: TOPIRAMATE
     Dosage: 200 MG, 2X/DAY
     Route: 048
  2. ALPRAZOLAM. [Concomitant]
     Active Substance: ALPRAZOLAM
     Dosage: 1 MG, 3X/DAY(1 MG TABLET ER 24R, ORAL BID)
     Route: 048
  3. FUROSEMIDE. [Concomitant]
     Active Substance: FUROSEMIDE
     Dosage: 40 MG, 1X/DAY
     Route: 048
  4. LYRICA [Suspect]
     Active Substance: PREGABALIN
     Dosage: 200 MG, DAILY (QHS)
     Route: 048
     Dates: start: 20161118
  5. DULOXETINE HCL [Concomitant]
     Active Substance: DULOXETINE HYDROCHLORIDE
     Dosage: 120 MG, DAILY
     Route: 048
  6. BUSPIRONE HCL [Concomitant]
     Active Substance: BUSPIRONE HYDROCHLORIDE
     Dosage: 30 MG, 2X/DAY
     Route: 048
  7. OMEPRAZOLE. [Concomitant]
     Active Substance: OMEPRAZOLE
     Dosage: 40 MG, 2X/DAY
     Route: 048
  8. POTASSIUM CHLORIDE. [Concomitant]
     Active Substance: POTASSIUM CHLORIDE
     Dosage: 10 MEQ, 1X/DAY
     Route: 048
  9. LYRICA [Suspect]
     Active Substance: PREGABALIN
     Indication: FIBROMYALGIA
     Dosage: 150 MG, 2X/DAY
     Route: 048
  10. QUETIAPINE FUMARATE. [Concomitant]
     Active Substance: QUETIAPINE FUMARATE
     Dosage: 100 MG, 1X/DAY
     Route: 048
  11. CALCIUM WITH VITAMIN D3 [Concomitant]
     Active Substance: CALCIUM CARBONATE\CHOLECALCIFEROL
     Dosage: [CALCIUM 1200 MG] / [VITAMIN D3: 800 IU]2X/DAY
  12. LAXATIVE [Concomitant]
     Active Substance: UNSPECIFIED INGREDIENT
     Dosage: 30-100 MG CAPSULE AS NEEDED
     Route: 048
  13. VITAMIN C [Concomitant]
     Active Substance: ASCORBIC ACID
     Dosage: 500 MG, 1X/DAY
     Route: 048
  14. ASPIRIN. [Concomitant]
     Active Substance: ASPIRIN
     Dosage: 81 MG, 1X/DAY
     Route: 048
  15. TOPIRAMATE. [Concomitant]
     Active Substance: TOPIRAMATE
     Dosage: 50 MG, 2X/DAY( (50MG CP24 SPRINKLE, 1 ORAL TWICE DAILY)
     Route: 048
  16. ACETAMINOPHEN W/OXYCODONE [Concomitant]
     Active Substance: ACETAMINOPHEN\OXYCODONE HYDROCHLORIDE
     Dosage: 10-325 MG TABLET, EVERY SIX HOURS
     Route: 048
  17. OXYBUTYNIN CHLORIDE. [Concomitant]
     Active Substance: OXYBUTYNIN CHLORIDE
     Dosage: 10 MG, 1X/DAY
     Route: 048
  18. ONDANSETRON HCL [Concomitant]
     Active Substance: ONDANSETRON HYDROCHLORIDE
     Dosage: 8 MG, AS NEEDED(8 MG TABLET, ORAL AS NEEDED)
     Route: 048

REACTIONS (27)
  - Carotid bruit [Unknown]
  - Night sweats [Unknown]
  - Oedema [Unknown]
  - Depression [Unknown]
  - Drug ineffective [Unknown]
  - White blood cell count increased [Unknown]
  - Dysphagia [Unknown]
  - Mouth ulceration [Unknown]
  - Muscular weakness [Unknown]
  - Mucosal dryness [Unknown]
  - Arthralgia [Unknown]
  - Myalgia [Unknown]
  - Nausea [Unknown]
  - Amnesia [Unknown]
  - Vision blurred [Unknown]
  - Constipation [Unknown]
  - Dry eye [Unknown]
  - Headache [Unknown]
  - Musculoskeletal stiffness [Unknown]
  - Oropharyngeal pain [Unknown]
  - Back pain [Unknown]
  - Platelet count increased [Unknown]
  - Fatigue [Unknown]
  - Joint stiffness [Unknown]
  - Anxiety [Unknown]
  - Fall [Unknown]
  - Insomnia [Unknown]

NARRATIVE: CASE EVENT DATE: 20170204
